FAERS Safety Report 24942104 (Version 2)
Quarter: 2025Q1

REPORT INFORMATION
  Report Type: Spontaneous
  Country: US (occurrence: US)
  Receive Date: 20250207
  Receipt Date: 20250324
  Transmission Date: 20250409
  Serious: Yes (Other)
  Sender: ELI LILLY AND COMPANY
  Company Number: US-ELI_LILLY_AND_COMPANY-US202502001851

PATIENT
  Age: 76 Year
  Sex: Female
  Weight: 80.726 kg

DRUGS (6)
  1. KISUNLA [Suspect]
     Active Substance: DONANEMAB-AZBT
     Indication: Dementia Alzheimer^s type
     Route: 042
  2. KISUNLA [Suspect]
     Active Substance: DONANEMAB-AZBT
     Indication: Cognitive disorder
     Route: 042
  3. ACETAMINOPHEN\DIPHENHYDRAMINE\PHENYLPROPANOLAMINE [Concomitant]
     Active Substance: ACETAMINOPHEN\DIPHENHYDRAMINE\PHENYLPROPANOLAMINE
     Route: 065
  4. TYLENOL [Concomitant]
     Active Substance: ACETAMINOPHEN
     Route: 065
  5. ZOFRAN [Concomitant]
     Active Substance: ONDANSETRON HYDROCHLORIDE
     Route: 065
  6. SODIUM CHLORIDE [Concomitant]
     Active Substance: SODIUM CHLORIDE
     Route: 042

REACTIONS (9)
  - Neoplasm malignant [Unknown]
  - Oxygen saturation decreased [Recovered/Resolved]
  - Dyspnoea [Recovered/Resolved]
  - Chills [Recovered/Resolved]
  - Flank pain [Unknown]
  - Urine ketone body present [Unknown]
  - Tachypnoea [Unknown]
  - Respiratory distress [Unknown]
  - Infusion related reaction [Unknown]
